APPROVED DRUG PRODUCT: TRIMETHOBENZAMIDE HYDROCHLORIDE
Active Ingredient: TRIMETHOBENZAMIDE HYDROCHLORIDE
Strength: 300MG
Dosage Form/Route: CAPSULE;ORAL
Application: A076570 | Product #001
Applicant: SUN PHARMACEUTICAL INDUSTRIES INC
Approved: Aug 28, 2003 | RLD: No | RS: No | Type: DISCN